FAERS Safety Report 7362083-9 (Version None)
Quarter: 2011Q1

REPORT INFORMATION
  Report Type: 
  Country: None (occurrence: None)
  Receive Date: 20110318
  Receipt Date: 20110308
  Transmission Date: 20110831
  Serious: Yes (Hospitalization)
  Sender: FDA-Public Use
  Company Number: US-JNJFOC-20110306312

PATIENT
  Sex: Male
  Weight: 122.47 kg

DRUGS (16)
  1. TRIAZOLAM [Concomitant]
     Indication: SLEEP DISORDER
     Route: 048
  2. PREDNISONE [Concomitant]
     Indication: RHEUMATOID ARTHRITIS
     Route: 048
  3. ADVAIR DISKUS 100/50 [Concomitant]
     Indication: CHRONIC OBSTRUCTIVE PULMONARY DISEASE
     Route: 048
  4. REMICADE [Suspect]
     Indication: PSORIASIS
     Route: 042
  5. OXYCODONE HCL [Concomitant]
     Indication: PAIN
     Dosage: DAILY
     Route: 048
  6. MARIJUANA [Concomitant]
     Indication: PRODUCT USED FOR UNKNOWN INDICATION
     Dosage: DAILY
  7. REMICADE [Suspect]
     Indication: PSORIATIC ARTHROPATHY
     Route: 042
  8. COMBIVENT [Concomitant]
     Indication: CHRONIC OBSTRUCTIVE PULMONARY DISEASE
     Route: 048
  9. ZOCOR [Concomitant]
     Indication: BLOOD CHOLESTEROL INCREASED
     Dosage: DAILY
     Route: 048
  10. BENICAR [Concomitant]
     Indication: HYPERTENSION
     Route: 048
  11. TRAZODONE HCL [Concomitant]
     Indication: SLEEP DISORDER
     Dosage: DAILY
     Route: 048
  12. REMICADE [Suspect]
     Indication: RHEUMATOID ARTHRITIS
     Route: 042
  13. OXYCONTIN [Concomitant]
     Indication: PAIN
     Dosage: DAILY
     Route: 048
  14. DEXILANT [Concomitant]
     Indication: THROAT IRRITATION
     Route: 048
  15. PREDNISONE [Concomitant]
     Indication: PSORIATIC ARTHROPATHY
     Route: 048
  16. ZOLOFT [Concomitant]
     Indication: DEPRESSION
     Dosage: ONCE OR TWICE DAILY
     Route: 048

REACTIONS (6)
  - BALANCE DISORDER [None]
  - FALL [None]
  - FRACTURE [None]
  - MALAISE [None]
  - VISION BLURRED [None]
  - DIZZINESS [None]
